FAERS Safety Report 17658072 (Version 2)
Quarter: 2020Q2

REPORT INFORMATION
  Report Type: Spontaneous
  Country: US (occurrence: US)
  Receive Date: 20200411
  Receipt Date: 20200421
  Transmission Date: 20200713
  Serious: No
  Sender: FDA-Public Use
  Company Number: US-TEVA-2020-US-1220268

PATIENT
  Sex: Male

DRUGS (1)
  1. TESTOSTERONE TEVA [Suspect]
     Active Substance: TESTOSTERONE
     Indication: BLOOD TESTOSTERONE DECREASED
     Dosage: 1 %
     Route: 065
     Dates: start: 202003

REACTIONS (4)
  - Paraesthesia [Unknown]
  - Libido decreased [Unknown]
  - Therapeutic product effect variable [Unknown]
  - Fatigue [Unknown]
